FAERS Safety Report 5256084-4 (Version None)
Quarter: 2007Q1

REPORT INFORMATION
  Report Type: 
  Country: None (occurrence: None)
  Receive Date: 20070306
  Receipt Date: 20070221
  Transmission Date: 20070707
  Serious: Yes (Life-Threatening, Hospitalization, Other)
  Sender: FDA-Public Use
  Company Number: GB-JNJFOC-20070103310

PATIENT
  Age: 64 Year
  Sex: Female
  Weight: 65 kg

DRUGS (7)
  1. IBUPROFEN [Suspect]
     Indication: DRUG USE FOR UNKNOWN INDICATION
  2. AMOXICILLIN [Suspect]
     Indication: LOWER RESPIRATORY TRACT INFECTION
     Route: 048
  3. NAPROXEN [Suspect]
     Indication: ARTHRALGIA
     Route: 048
  4. ADCAL-D3 [Concomitant]
     Indication: PROPHYLAXIS
     Route: 048
  5. BUMETANIDE [Concomitant]
     Indication: OEDEMA
     Route: 048
  6. CO-CODAMOL [Concomitant]
     Indication: ARTHRALGIA
     Route: 048
  7. KLIOVANCE [Concomitant]
     Indication: HORMONE REPLACEMENT THERAPY
     Route: 048

REACTIONS (3)
  - AUTOIMMUNE HEPATITIS [None]
  - ENCEPHALITIS [None]
  - HEPATIC NECROSIS [None]
